FAERS Safety Report 5358756-X (Version None)
Quarter: 2007Q2

REPORT INFORMATION
  Report Type: 
  Country: None (occurrence: None)
  Receive Date: 20070530
  Receipt Date: 20070207
  Transmission Date: 20071010
  Serious: No
  Sender: FDA-Public Use
  Company Number: 2007PV029718

PATIENT
  Age: 58 Year
  Sex: Male

DRUGS (2)
  1. BYETTA [Suspect]
     Indication: DIABETES MELLITUS NON-INSULIN-DEPENDENT
     Dosage: 5 MCG;BID;SC
     Route: 058
     Dates: start: 20060601
  2. AVANDAMET [Concomitant]

REACTIONS (2)
  - DRUG INEFFECTIVE [None]
  - POLLAKIURIA [None]
